FAERS Safety Report 11052964 (Version 1)
Quarter: 2015Q2

REPORT INFORMATION
  Report Type: Spontaneous
  Country: PE (occurrence: PE)
  Receive Date: 20150421
  Receipt Date: 20150421
  Transmission Date: 20150821
  Serious: Yes (Other)
  Sender: FDA-Public Use
  Company Number: PE-PFIZER INC-2014317938

PATIENT
  Age: 68 Year
  Sex: Male

DRUGS (1)
  1. ACCUPRIL [Suspect]
     Active Substance: QUINAPRIL HYDROCHLORIDE
     Indication: BLOOD PRESSURE INCREASED
     Dosage: UNK
     Route: 048
     Dates: end: 20141102

REACTIONS (4)
  - Blood creatinine increased [Unknown]
  - Nephrolithiasis [Unknown]
  - Prostatic disorder [Unknown]
  - Drug ineffective [Unknown]
